FAERS Safety Report 9944062 (Version 1)
Quarter: 2014Q1

REPORT INFORMATION
  Report Type: Report from Study
  Country: US (occurrence: US)
  Receive Date: 20140303
  Receipt Date: 20140303
  Transmission Date: 20141002
  Serious: No
  Sender: FDA-Public Use
  Company Number: US-ABBVIE-13P-163-1049916-00

PATIENT
  Age: 67 Year
  Sex: Male
  Weight: 149.82 kg

DRUGS (7)
  1. HUMIRA [Suspect]
     Indication: PSORIASIS
     Dates: start: 201202
  2. TOPROL [Concomitant]
     Indication: HYPERTENSION
  3. PROCARDIA [Concomitant]
     Indication: ATRIAL FIBRILLATION
  4. FUROSEMIDE [Concomitant]
     Indication: FLUID RETENTION
  5. SPIRINOLACTONE [Concomitant]
     Indication: FLUID RETENTION
  6. VITAMIN E [Concomitant]
     Indication: SUPPLEMENTATION THERAPY
  7. VITAMIN D [Concomitant]
     Indication: SUPPLEMENTATION THERAPY

REACTIONS (2)
  - Glycosylated haemoglobin increased [Not Recovered/Not Resolved]
  - Blood pressure increased [Not Recovered/Not Resolved]
